FAERS Safety Report 4945310-4 (Version None)
Quarter: 2006Q1

REPORT INFORMATION
  Report Type: 
  Country: None (occurrence: None)
  Receive Date: 20060315
  Receipt Date: 20060315
  Transmission Date: 20060701
  Serious: Yes (Hospitalization)
  Sender: FDA-Public Use
  Company Number: None

PATIENT
  Age: 63 Year
  Sex: Male
  Weight: 125 kg

DRUGS (16)
  1. WARFARIN 5 MG DUPONT [Suspect]
     Indication: PULMONARY EMBOLISM
     Dosage: 2.5 MG/5 MG QTH /ROW PO
     Route: 048
     Dates: start: 20030518, end: 20051218
  2. CLOPIDOGREL 75 MG SANOFI [Suspect]
     Indication: CORONARY ARTERIAL STENT INSERTION
     Dosage: 75 MG DAILY PO
     Route: 048
     Dates: start: 20050621, end: 20060314
  3. CELECOXIB [Concomitant]
  4. CLOPIDOGREL [Concomitant]
  5. FELODIPINE [Concomitant]
  6. FUROSEMIDE [Concomitant]
  7. GOSERELIN [Concomitant]
  8. HOMATROPINE [Concomitant]
  9. OPHTHALMIC [Concomitant]
  10. LEVOTHYROXINE SODIUM [Concomitant]
  11. LISINOPRIL [Concomitant]
  12. METHOTREXATE [Concomitant]
  13. MORPHINE SULFATE [Concomitant]
  14. OMEPRAZOLE [Concomitant]
  15. PREDNISONE [Concomitant]
  16. WARFARIN SODIUM [Concomitant]

REACTIONS (7)
  - ABASIA [None]
  - CEREBROVASCULAR ACCIDENT [None]
  - DEPRESSED LEVEL OF CONSCIOUSNESS [None]
  - DIZZINESS [None]
  - DYSARTHRIA [None]
  - GASTROINTESTINAL HAEMORRHAGE [None]
  - HEMIPARESIS [None]
